FAERS Safety Report 9344337 (Version 1)
Quarter: 2013Q2

REPORT INFORMATION
  Report Type: Spontaneous
  Country: JP (occurrence: JP)
  Receive Date: 20130612
  Receipt Date: 20130612
  Transmission Date: 20140414
  Serious: Yes (Hospitalization)
  Sender: FDA-Public Use
  Company Number: JP-ASTELLAS-2013JP006444

PATIENT
  Age: 64 Year
  Sex: Male

DRUGS (1)
  1. BETANIS [Suspect]
     Dosage: UNK
     Route: 048
     Dates: start: 201303

REACTIONS (1)
  - Blood creatine phosphokinase increased [Unknown]
